FAERS Safety Report 25833042 (Version 1)
Quarter: 2025Q3

REPORT INFORMATION
  Report Type: Spontaneous
  Country: EU (occurrence: EU)
  Receive Date: 20250922
  Receipt Date: 20250922
  Transmission Date: 20251021
  Serious: Yes (Hospitalization)
  Sender: PFIZER
  Company Number: EU-ROCHE-2811653

PATIENT
  Age: 70 Year
  Sex: Female
  Weight: 97 kg

DRUGS (12)
  1. TRASTUZUMAB [Suspect]
     Active Substance: TRASTUZUMAB
     Indication: HER2 positive breast cancer
     Dosage: 6 MG/KG, EVERY 3 WEEKS
     Route: 042
  2. TRASTUZUMAB [Suspect]
     Active Substance: TRASTUZUMAB
     Dosage: 8 MG/KG, EVERY 3 WEEKS
     Route: 042
  3. FLUOROURACIL [Suspect]
     Active Substance: FLUOROURACIL
     Indication: HER2 positive breast cancer
     Dosage: UNK, EVERY 3 WEEKS (500-600 MG/M2 AS PER PROTOCOL MOST RECENT DOSE PRIOR TO AE ON 2/JAN/2013)
     Route: 042
     Dates: start: 20121121
  4. EPIRUBICIN HYDROCHLORIDE [Suspect]
     Active Substance: EPIRUBICIN HYDROCHLORIDE
     Indication: HER2 positive breast cancer
     Dosage: UNK, EVERY 3 WEEKS (90-120 MG/M2 AS PER PROTOCOL MOST RECENT DOSE PRIOR TO AE ON 02JAN2013)
     Route: 042
     Dates: start: 20121121
  5. PLACEBO [Suspect]
     Active Substance: PLACEBO
     Indication: HER2 positive breast cancer
     Dosage: UNK, EVERY 3 WEEKS
     Route: 042
  6. PLACEBO [Suspect]
     Active Substance: PLACEBO
     Route: 042
     Dates: start: 20130326
  7. CYCLOPHOSPHAMIDE [Suspect]
     Active Substance: CYCLOPHOSPHAMIDE
     Indication: HER2 positive breast cancer
     Dosage: UNK, EVERY 3 WEEKS (500-600 MG/M2 AS PER PROTOCOL MOST RECENT DOSE PRIOR TO AE ON 2JAN2013)
     Route: 042
     Dates: start: 20121121
  8. TAXOTERE [Suspect]
     Active Substance: DOCETAXEL
     Indication: HER2 positive breast cancer
     Route: 042
     Dates: start: 20130122
  9. BILASTINE [Concomitant]
     Active Substance: BILASTINE
  10. OXAZEPAM [Concomitant]
     Active Substance: OXAZEPAM
  11. VALSARTAN [Concomitant]
     Active Substance: VALSARTAN
  12. HYDROCHLOROTHIAZIDE [Concomitant]
     Active Substance: HYDROCHLOROTHIAZIDE

REACTIONS (1)
  - Benign neoplasm of skin [Recovered/Resolved]

NARRATIVE: CASE EVENT DATE: 20200121
